FAERS Safety Report 18941110 (Version 1)
Quarter: 2021Q1

REPORT INFORMATION
  Report Type: Report from Study
  Country: US (occurrence: US)
  Receive Date: 20210225
  Receipt Date: 20210225
  Transmission Date: 20210420
  Serious: Yes (Other)
  Sender: FDA-Public Use
  Company Number: US-JNJFOC-20201137194

PATIENT
  Age: 68 Year
  Sex: Female
  Weight: 74.91 kg

DRUGS (6)
  1. UPTRAVI [Suspect]
     Active Substance: SELEXIPAG
     Indication: PULMONARY ARTERIAL HYPERTENSION
     Route: 065
     Dates: start: 202102, end: 202102
  2. MACITENTAN [Suspect]
     Active Substance: MACITENTAN
     Indication: PULMONARY ARTERIAL HYPERTENSION
     Route: 048
  3. MACITENTAN [Suspect]
     Active Substance: MACITENTAN
     Route: 048
  4. TADALAFIL. [Concomitant]
     Active Substance: TADALAFIL
  5. OXYGEN. [Concomitant]
     Active Substance: OXYGEN
     Indication: OXYGEN SATURATION DECREASED
     Route: 065
  6. ELIQUIS [Concomitant]
     Active Substance: APIXABAN

REACTIONS (20)
  - Mental impairment [Not Recovered/Not Resolved]
  - Memory impairment [Unknown]
  - Pain [Recovering/Resolving]
  - Pain in jaw [Recovering/Resolving]
  - Hypersensitivity [Unknown]
  - Asthenia [Not Recovered/Not Resolved]
  - Vision blurred [Unknown]
  - Dizziness [Unknown]
  - Oxygen saturation decreased [Unknown]
  - Headache [Not Recovered/Not Resolved]
  - Vomiting [Unknown]
  - Renal failure [Unknown]
  - Illness [Recovering/Resolving]
  - Abdominal discomfort [Unknown]
  - Unevaluable event [Not Recovered/Not Resolved]
  - Sleep apnoea syndrome [Unknown]
  - Visual impairment [Unknown]
  - Lacrimation increased [Unknown]
  - Choking sensation [Unknown]
  - Disorientation [Unknown]

NARRATIVE: CASE EVENT DATE: 2020
